FAERS Safety Report 6846988-0 (Version None)
Quarter: 2010Q3

REPORT INFORMATION
  Report Type: 
  Country: None (occurrence: None)
  Receive Date: 20100713
  Receipt Date: 20100706
  Transmission Date: 20110219
  Serious: No
  Sender: FDA-Public Use
  Company Number: 2010SP031932

PATIENT
  Age: 52 Year
  Sex: Female
  Weight: 63 kg

DRUGS (11)
  1. MIRTAZAPINE [Suspect]
     Indication: DEPRESSION
     Dosage: 15 MG; QD; PO, 30 MG; QD; PO
     Route: 048
     Dates: start: 20091211, end: 20091214
  2. MIRTAZAPINE [Suspect]
     Indication: DISEASE RECURRENCE
     Dosage: 15 MG; QD; PO, 30 MG; QD; PO
     Route: 048
     Dates: start: 20091211, end: 20091214
  3. MIRTAZAPINE [Suspect]
     Indication: DEPRESSION
     Dosage: 15 MG; QD; PO, 30 MG; QD; PO
     Route: 048
     Dates: start: 20091215, end: 20091227
  4. MIRTAZAPINE [Suspect]
     Indication: DISEASE RECURRENCE
     Dosage: 15 MG; QD; PO, 30 MG; QD; PO
     Route: 048
     Dates: start: 20091215, end: 20091227
  5. MIRTAZAPINE [Suspect]
     Indication: DEPRESSION
     Dosage: 15 MG; QD; PO, 30 MG; QD; PO
     Route: 048
     Dates: start: 20091230
  6. MIRTAZAPINE [Suspect]
     Indication: DISEASE RECURRENCE
     Dosage: 15 MG; QD; PO, 30 MG; QD; PO
     Route: 048
     Dates: start: 20091230
  7. VENLAFAXINE HCL [Suspect]
     Indication: DEPRESSION
     Dosage: 75 MG; QD; PO, 150 MG; QD; PO, 225 MG; QD; PO, 300 MG; QD; PO
     Route: 048
     Dates: start: 20091210, end: 20091214
  8. VENLAFAXINE HCL [Suspect]
     Indication: DEPRESSION
     Dosage: 75 MG; QD; PO, 150 MG; QD; PO, 225 MG; QD; PO, 300 MG; QD; PO
     Route: 048
     Dates: start: 20091215, end: 20091218
  9. VENLAFAXINE HCL [Suspect]
     Indication: DEPRESSION
     Dosage: 75 MG; QD; PO, 150 MG; QD; PO, 225 MG; QD; PO, 300 MG; QD; PO
     Route: 048
     Dates: start: 20091219, end: 20091221
  10. VENLAFAXINE HCL [Suspect]
     Indication: DEPRESSION
     Dosage: 75 MG; QD; PO, 150 MG; QD; PO, 225 MG; QD; PO, 300 MG; QD; PO
     Route: 048
     Dates: start: 20091222
  11. LEVOTHYROXINE SODIUM [Concomitant]

REACTIONS (2)
  - DYSGEUSIA [None]
  - ORAL DISCOMFORT [None]
